FAERS Safety Report 9540170 (Version 3)
Quarter: 2013Q4

REPORT INFORMATION
  Report Type: Spontaneous
  Country: US (occurrence: US)
  Receive Date: 20130920
  Receipt Date: 20131002
  Transmission Date: 20140711
  Serious: Yes (Hospitalization, Other)
  Sender: FDA-Public Use
  Company Number: US-GILEAD-2013-0083630

PATIENT
  Age: 48 Year
  Sex: Male

DRUGS (2)
  1. LETAIRIS [Suspect]
     Indication: PULMONARY ARTERIAL HYPERTENSION
     Dosage: 10 MG, QD
     Dates: start: 2007
  2. XARELTO [Suspect]
     Indication: PRODUCT USED FOR UNKNOWN INDICATION
     Dates: start: 20130911, end: 20130916

REACTIONS (4)
  - Hip arthroplasty [Unknown]
  - Thrombosis [Recovered/Resolved]
  - Thrombosis [Recovered/Resolved]
  - Pneumonia [Recovered/Resolved]
